FAERS Safety Report 8957473 (Version 1)
Quarter: 2012Q4

REPORT INFORMATION
  Report Type: Report from Study
  Country: CA (occurrence: CA)
  Receive Date: 20121210
  Receipt Date: 20121210
  Transmission Date: 20130627
  Serious: Yes (Death)
  Sender: FDA-Public Use
  Company Number: CA-ROCHE-660794

PATIENT
  Age: 58 Year
  Sex: Male
  Weight: 74 kg

DRUGS (2)
  1. BEVACIZUMAB [Suspect]
     Indication: OESOPHAGEAL CARCINOMA
     Route: 048
  2. CAPECITABINE [Suspect]
     Indication: OESOPHAGEAL CARCINOMA
     Route: 048
     Dates: start: 2009, end: 2009

REACTIONS (1)
  - Disease progression [Fatal]
